FAERS Safety Report 7851628-8 (Version None)
Quarter: 2011Q4

REPORT INFORMATION
  Report Type: 
  Country: None (occurrence: None)
  Receive Date: 20111026
  Receipt Date: 20111018
  Transmission Date: 20120403
  Serious: Yes (Other)
  Sender: FDA-Public Use
  Company Number: PHHY2011FR68544

PATIENT
  Sex: Female
  Weight: 82 kg

DRUGS (5)
  1. ANTIARRHYTHMICS [Concomitant]
  2. BETA BLOCKING AGENTS [Suspect]
     Dosage: UNK UKN, UNK
     Dates: start: 20100101
  3. ANTIHYPERTENSIVE DRUGS [Concomitant]
  4. VALSARTAN [Suspect]
     Indication: HYPERTENSION
     Dosage: 80 MG, ONCE PER DAY
     Dates: start: 20060101
  5. SECTRAL [Concomitant]
     Dosage: 1 DF, QD, 200 MG

REACTIONS (2)
  - RENAL TUBULAR DISORDER [None]
  - ALPHA 1 MICROGLOBULIN INCREASED [None]
